FAERS Safety Report 18497369 (Version 4)
Quarter: 2021Q1

REPORT INFORMATION
  Report Type: Spontaneous
  Country: US (occurrence: US)
  Receive Date: 20201112
  Receipt Date: 20210325
  Transmission Date: 20210419
  Serious: Yes (Life-Threatening, Other)
  Sender: FDA-Public Use
  Company Number: US-PURDUE-USA-2020-0172999

PATIENT
  Sex: Male

DRUGS (8)
  1. OXYCODONE HCL TABLETS (RHODES 91?490) [Suspect]
     Active Substance: OXYCODONE HYDROCHLORIDE
     Indication: PAIN
  2. TRAMADOL. [Suspect]
     Active Substance: TRAMADOL
     Indication: PRODUCT USED FOR UNKNOWN INDICATION
     Dosage: UNK
     Route: 065
  3. OXYCONTIN [Suspect]
     Active Substance: OXYCODONE HYDROCHLORIDE
     Indication: SURGERY
     Dosage: UNK
     Route: 048
  4. OXYCODONE HCL TABLETS (RHODES 91?490) [Suspect]
     Active Substance: OXYCODONE HYDROCHLORIDE
     Indication: SURGERY
     Dosage: UNK
     Route: 048
  5. HYDROCODONE BITARTRATE (SIMILAR TO NDA 206627) [Suspect]
     Active Substance: HYDROCODONE BITARTRATE
     Indication: PAIN
     Dosage: UNK
     Route: 048
  6. HYDROCODONE BITARTRATE AND ACETAMINOPHEN [Suspect]
     Active Substance: ACETAMINOPHEN\HYDROCODONE BITARTRATE
     Indication: SURGERY
     Dosage: UNK
     Route: 048
  7. DILAUDID [Suspect]
     Active Substance: HYDROMORPHONE HYDROCHLORIDE
     Indication: SURGERY
     Dosage: UNK
     Route: 048
  8. OXYCODONE/ ACETAMINOPHEN TABLETS [Suspect]
     Active Substance: ACETAMINOPHEN\OXYCODONE HYDROCHLORIDE
     Indication: SURGERY
     Dosage: UNK
     Route: 048

REACTIONS (21)
  - Drug dependence [Unknown]
  - Drug tolerance increased [Unknown]
  - Overdose [Unknown]
  - Drug withdrawal syndrome [Unknown]
  - Feeling abnormal [Unknown]
  - Hyperhidrosis [Unknown]
  - Constipation [Unknown]
  - Irritability [Unknown]
  - Insomnia [Unknown]
  - Mental disorder [Unknown]
  - Fatigue [Unknown]
  - Affective disorder [Unknown]
  - Syncope [Unknown]
  - Pain [Unknown]
  - Anxiety [Unknown]
  - Drug abuse [Unknown]
  - Abnormal behaviour [Unknown]
  - Injury [Unknown]
  - Depression [Unknown]
  - Euphoric mood [Unknown]
  - Hypersomnia [Unknown]
